FAERS Safety Report 17406690 (Version 3)
Quarter: 2020Q1

REPORT INFORMATION
  Report Type: Spontaneous
  Country: US (occurrence: US)
  Receive Date: 20200212
  Receipt Date: 20200316
  Transmission Date: 20200409
  Serious: Yes (Other)
  Sender: FDA-Public Use
  Company Number: US-LUPIN PHARMACEUTICALS INC.-2020-00617

PATIENT
  Age: 58 Year
  Sex: Female
  Weight: 81.18 kg

DRUGS (6)
  1. NIACIN EXTENDED RELEASE TABLET USP 500 MG [Suspect]
     Active Substance: NIACIN
     Indication: HIGH DENSITY LIPOPROTEIN INCREASED
     Dosage: QD (OVER 5 YEARS)
     Route: 048
  2. FENOFIBRATE TABLETS USP, 160 MG [Suspect]
     Active Substance: FENOFIBRATE
     Indication: HYPERCHOLESTEROLAEMIA
     Dosage: (OVER 5 YEARS)
     Route: 048
  3. FENOFIBRATE TABLETS USP, 160 MG [Suspect]
     Active Substance: FENOFIBRATE
     Indication: DYSLIPIDAEMIA
  4. PRAVASTATIN. [Suspect]
     Active Substance: PRAVASTATIN
     Indication: HYPERCHOLESTEROLAEMIA
     Dosage: UNK UNK, AFTER DINNER (OVER 5 YEARS)
     Route: 065
  5. AMLODIPINE AND BENAZEPRIL HYDROCHLORIDE CAPSULES USP, 2.5 MG/10 MG [Suspect]
     Active Substance: AMLODIPINE BESYLATE\BENAZEPRIL HYDROCHLORIDE
     Indication: HYPERTENSION
     Dosage: UNK UNK, QD, STARTED 17 YEARS AGO
     Route: 048
  6. METFORMIN [Suspect]
     Active Substance: METFORMIN HYDROCHLORIDE
     Indication: DIABETES MELLITUS
     Dosage: UNK UNK, AFTER DINNER (OVER 5 YEARS)
     Route: 065

REACTIONS (3)
  - Coeliac disease [Unknown]
  - Abdominal distension [Unknown]
  - Iron deficiency anaemia [Unknown]

NARRATIVE: CASE EVENT DATE: 20191202
